FAERS Safety Report 13754571 (Version 2)
Quarter: 2017Q3

REPORT INFORMATION
  Report Type: Spontaneous
  Country: FR (occurrence: FR)
  Receive Date: 20170714
  Receipt Date: 20170722
  Transmission Date: 20171127
  Serious: Yes (Life-Threatening, Hospitalization)
  Sender: FDA-Public Use
  Company Number: FR-ACCORD-053618

PATIENT
  Age: 15 Year
  Sex: Female

DRUGS (6)
  1. CISPLATIN MYLAN [Suspect]
     Active Substance: CISPLATIN
     Indication: UNDIFFERENTIATED NASOPHARYNGEAL CARCINOMA
     Dosage: ON DAY1. ALSO RECEIVED AT 100 MG/M2 ON 09-JUN-2017.
     Route: 042
     Dates: start: 20170609, end: 20170610
  2. FLUOROURACIL. [Suspect]
     Active Substance: FLUOROURACIL
     Indication: UNDIFFERENTIATED NASOPHARYNGEAL CARCINOMA
     Dosage: ALSO RECEIVED 500 MG/M2 ON 10-JUN-2017
     Route: 042
     Dates: start: 20170610, end: 20170612
  3. ZOPHREN [Suspect]
     Active Substance: ONDANSETRON
     Indication: NAUSEA
     Route: 042
     Dates: start: 20170609, end: 20170612
  4. EMEND [Suspect]
     Active Substance: APREPITANT
     Indication: PRODUCT USED FOR UNKNOWN INDICATION
     Route: 048
     Dates: start: 20170609, end: 20170611
  5. BACTRIM [Suspect]
     Active Substance: SULFAMETHOXAZOLE\TRIMETHOPRIM
     Indication: INFECTION PROPHYLAXIS
     Route: 048
  6. PRIMPERAN [Suspect]
     Active Substance: METOCLOPRAMIDE HYDROCHLORIDE
     Indication: NAUSEA
     Route: 042
     Dates: start: 20170609, end: 20170612

REACTIONS (6)
  - Off label use [Unknown]
  - Cardiogenic shock [Recovering/Resolving]
  - Myocarditis [Recovering/Resolving]
  - Left ventricular dysfunction [Unknown]
  - Bundle branch block [Unknown]
  - Metabolic acidosis [Unknown]

NARRATIVE: CASE EVENT DATE: 201706
